FAERS Safety Report 10389165 (Version 3)
Quarter: 2014Q3

REPORT INFORMATION
  Report Type: Spontaneous
  Country: US (occurrence: US)
  Receive Date: 20140817
  Receipt Date: 20140902
  Transmission Date: 20150326
  Serious: Yes (Other)
  Sender: FDA-Public Use
  Company Number: US-009507513-1408USA007696

PATIENT
  Age: 14 Year
  Sex: Male
  Weight: 65.76 kg

DRUGS (6)
  1. CEPHALEXIN. [Concomitant]
     Active Substance: CEPHALEXIN
     Indication: PHARYNGITIS STREPTOCOCCAL
     Dosage: UNK
     Route: 048
     Dates: start: 20140801
  2. GRASTEK [Suspect]
     Active Substance: PHLEUM PRATENSE POLLEN
     Indication: RHINITIS ALLERGIC
     Dosage: 2800 BAU^S, FREQUENCY UNSPECIFIED
     Route: 060
     Dates: start: 20140807, end: 20140807
  3. BENZOYL PEROXIDE. [Concomitant]
     Active Substance: BENZOYL PEROXIDE
     Indication: ACNE
     Route: 061
  4. SINGULAIR [Concomitant]
     Active Substance: MONTELUKAST SODIUM
     Indication: RHINITIS ALLERGIC
     Dosage: UNK
     Route: 048
  5. CLARITIN [Concomitant]
     Active Substance: LORATADINE
     Indication: RHINITIS ALLERGIC
     Dosage: UNK MG, UNK
     Route: 048
  6. CLEOCIN T [Concomitant]
     Active Substance: CLINDAMYCIN PHOSPHATE
     Indication: ACNE
     Dosage: FORMUALTION REPORTED AS SOLUTION
     Route: 061

REACTIONS (5)
  - Dysphagia [Recovered/Resolved]
  - Pharyngeal erythema [Unknown]
  - Throat irritation [Recovered/Resolved]
  - Stomatitis [Recovered/Resolved]
  - Oral mucosal erythema [Unknown]

NARRATIVE: CASE EVENT DATE: 20140807
